FAERS Safety Report 15278855 (Version 1)
Quarter: 2018Q3

REPORT INFORMATION
  Report Type: Spontaneous
  Country: JP (occurrence: JP)
  Receive Date: 20180815
  Receipt Date: 20180815
  Transmission Date: 20181010
  Serious: Yes (Hospitalization)
  Sender: FDA-Public Use
  Company Number: JP-B.I. PHARMACEUTICALS,INC./RIDGEFIELD-2018-NB-003941

PATIENT
  Age: 70 Year
  Sex: Female

DRUGS (2)
  1. GILOTRIF [Suspect]
     Active Substance: AFATINIB
     Indication: LUNG ADENOCARCINOMA
     Route: 050
     Dates: start: 20171027, end: 20171123
  2. GILOTRIF [Suspect]
     Active Substance: AFATINIB
     Indication: LUNG ADENOCARCINOMA
     Route: 050
     Dates: start: 20171124

REACTIONS (2)
  - Incorrect route of drug administration [Unknown]
  - Pneumatosis intestinalis [Not Recovered/Not Resolved]

NARRATIVE: CASE EVENT DATE: 20171222
